FAERS Safety Report 12137940 (Version 1)
Quarter: 2016Q1

REPORT INFORMATION
  Report Type: Spontaneous
  Country: US (occurrence: US)
  Receive Date: 20160302
  Receipt Date: 20160302
  Transmission Date: 20160526
  Serious: No
  Sender: FDA-Public Use
  Company Number: US-MALLINCKRODT-T201503119

PATIENT
  Age: 62 Year
  Sex: Female

DRUGS (1)
  1. SODIUM IODIDE (123 I) [Suspect]
     Active Substance: SODIUM IODIDE I-123
     Indication: DIAGNOSTIC PROCEDURE
     Dosage: 2 X 200 UCI CAPSULES, SINGLE
     Dates: start: 20150617, end: 20150617

REACTIONS (1)
  - Expired product administered [Unknown]

NARRATIVE: CASE EVENT DATE: 20150617
